FAERS Safety Report 10017357 (Version 1)
Quarter: 2014Q1

REPORT INFORMATION
  Report Type: Spontaneous
  Country: US (occurrence: US)
  Receive Date: 20140318
  Receipt Date: 20140318
  Transmission Date: 20141002
  Serious: Yes (Other)
  Sender: FDA-Public Use
  Company Number: PHHY2014US031707

PATIENT
  Age: 71 Year
  Sex: Male

DRUGS (1)
  1. VALSARTAN [Suspect]

REACTIONS (30)
  - Gastrointestinal disorder [Unknown]
  - Nausea [Unknown]
  - Abdominal distension [Recovered/Resolved]
  - Diarrhoea [Recovered/Resolved]
  - Vomiting [Unknown]
  - Faecal incontinence [Unknown]
  - Abdominal pain [Recovered/Resolved]
  - Weight decreased [Unknown]
  - Coeliac disease [Unknown]
  - Atrophy [Unknown]
  - Lymphocytosis [Unknown]
  - Hyperplasia [Unknown]
  - Inflammation [Unknown]
  - Malabsorption [Unknown]
  - Anaemia of chronic disease [Unknown]
  - Vitamin A deficiency [Unknown]
  - Carotene decreased [Unknown]
  - Zinc deficiency [Unknown]
  - Hypoalbuminaemia [Unknown]
  - Hypomagnesaemia [Unknown]
  - Transaminases increased [Unknown]
  - Muscle atrophy [Unknown]
  - Soft tissue disorder [Unknown]
  - Gastrointestinal sounds abnormal [Unknown]
  - Oedema peripheral [Unknown]
  - Abdominal lymphadenopathy [Unknown]
  - Biliary dilatation [Unknown]
  - Small intestinal bacterial overgrowth [Recovering/Resolving]
  - Intestinal dilatation [Unknown]
  - Oedema [Unknown]
